FAERS Safety Report 10748533 (Version 1)
Quarter: 2015Q1

REPORT INFORMATION
  Report Type: Spontaneous
  Country: US (occurrence: US)
  Receive Date: 20150129
  Receipt Date: 20150129
  Transmission Date: 20150721
  Serious: Yes (Hospitalization, Other)
  Sender: FDA-Public Use
  Company Number: US-CIPLA LTD.-2015US00587

PATIENT

DRUGS (10)
  1. DONEPEZIL [Suspect]
     Active Substance: DONEPEZIL
     Indication: IRRITABILITY
     Dosage: UNK
  2. AMISULPRIDE [Suspect]
     Active Substance: AMISULPRIDE
     Indication: IRRITABILITY
     Dosage: 50 MG, UNK
  3. DONEPEZIL [Suspect]
     Active Substance: DONEPEZIL
     Indication: DEPRESSIVE SYMPTOM
  4. ESCITALOPRAM [Suspect]
     Active Substance: ESCITALOPRAM OXALATE
     Indication: IRRITABILITY
     Dosage: UNK
  5. MIRTAZAPINE. [Suspect]
     Active Substance: MIRTAZAPINE
     Indication: DEPRESSIVE SYMPTOM
  6. ESCITALOPRAM [Suspect]
     Active Substance: ESCITALOPRAM OXALATE
     Indication: DEPRESSIVE SYMPTOM
  7. AMISULPRIDE [Suspect]
     Active Substance: AMISULPRIDE
     Indication: DEPRESSIVE SYMPTOM
     Dosage: UNK
  8. MIRTAZAPINE. [Suspect]
     Active Substance: MIRTAZAPINE
     Indication: IRRITABILITY
     Dosage: 15 MG, UNK
  9. HALOPERIDOL. [Suspect]
     Active Substance: HALOPERIDOL
     Indication: IRRITABILITY
     Dosage: 3.5 MG, QD
  10. HALOPERIDOL. [Suspect]
     Active Substance: HALOPERIDOL
     Indication: DEPRESSIVE SYMPTOM
     Dosage: 17.5 UNK, UNK

REACTIONS (12)
  - Nerve degeneration [Unknown]
  - Parkinsonian gait [Unknown]
  - Nervous system disorder [Unknown]
  - Irritability [Unknown]
  - Tremor [Unknown]
  - Abasia [Unknown]
  - Anxiety [Unknown]
  - Parkinsonian crisis [Unknown]
  - Feeding disorder [Unknown]
  - Muscle rigidity [Unknown]
  - Insomnia [Unknown]
  - Bradykinesia [Unknown]
